FAERS Safety Report 26111206 (Version 1)
Quarter: 2025Q4

REPORT INFORMATION
  Report Type: Spontaneous
  Country: US (occurrence: US)
  Receive Date: 20251202
  Receipt Date: 20251202
  Transmission Date: 20260117
  Serious: No
  Sender: ABBVIE
  Company Number: US-ABBVIE-6569026

PATIENT
  Sex: Male

DRUGS (2)
  1. RESTASIS [Suspect]
     Active Substance: CYCLOSPORINE
     Indication: Dry eye
     Route: 047
  2. RESTASIS [Suspect]
     Active Substance: CYCLOSPORINE
     Indication: Inflammation
     Route: 047
     Dates: start: 2023

REACTIONS (3)
  - Expired product administered [Unknown]
  - Off label use [Unknown]
  - Disease recurrence [Unknown]

NARRATIVE: CASE EVENT DATE: 20251126
